FAERS Safety Report 11129647 (Version 1)
Quarter: 2015Q2

REPORT INFORMATION
  Report Type: Report from Study
  Country: US (occurrence: US)
  Receive Date: 20150521
  Receipt Date: 20150521
  Transmission Date: 20150821
  Serious: Yes (Death, Other)
  Sender: FDA-Public Use
  Company Number: US-ASTELLAS-2015US015227

PATIENT
  Sex: Male

DRUGS (1)
  1. ERLOTINIB [Suspect]
     Active Substance: ERLOTINIB
     Indication: LUNG NEOPLASM MALIGNANT
     Route: 048

REACTIONS (7)
  - Chest discomfort [Unknown]
  - Asthenia [Unknown]
  - Feeling abnormal [Unknown]
  - Dysgeusia [Unknown]
  - Death [Fatal]
  - Hemiplegia [Unknown]
  - Diarrhoea [Unknown]
